FAERS Safety Report 9038900 (Version 2)
Quarter: 2013Q1

REPORT INFORMATION
  Report Type: Spontaneous
  Country: US (occurrence: US)
  Receive Date: 20130129
  Receipt Date: 20130201
  Transmission Date: 20140127
  Serious: No
  Sender: FDA-Public Use
  Company Number: US-B.I. PHARMACEUTICALS,INC./RIDGEFIELD-2013-BI-02454BP

PATIENT
  Age: 85 None
  Sex: Female

DRUGS (3)
  1. SPIRIVA [Suspect]
     Indication: PULMONARY CALCIFICATION
     Dosage: 18 MCG
     Route: 055
     Dates: start: 201202
  2. COUMADIN [Concomitant]
     Route: 048
  3. ATENOLOL [Concomitant]
     Indication: HYPERTENSION
     Route: 048

REACTIONS (3)
  - Dyspnoea [Not Recovered/Not Resolved]
  - Product quality issue [Recovered/Resolved]
  - Product quality issue [Recovered/Resolved]
